FAERS Safety Report 17212351 (Version 1)
Quarter: 2019Q4

REPORT INFORMATION
  Report Type: Spontaneous
  Country: CA (occurrence: CA)
  Receive Date: 20191230
  Receipt Date: 20191230
  Transmission Date: 20200122
  Serious: Yes (Disabling, Other)
  Sender: FDA-Public Use
  Company Number: CA-TEVA-2019-CA-1158275

PATIENT
  Age: 68 Year
  Sex: Female

DRUGS (7)
  1. ERGOCALCIFEROL. [Concomitant]
     Active Substance: ERGOCALCIFEROL
  2. ESOMEPRAZOLE MAGNESIUM TRIHYDRATE [Suspect]
     Active Substance: ESOMEPRAZOLE MAGNESIUM
     Indication: OESOPHAGITIS
     Dosage: 40 MILLIGRAM DAILY;
     Route: 048
  3. PROBIOTIC[BIFIDOBACTERIUM LACTIS] [Concomitant]
  4. CO ENZYME Q [Concomitant]
  5. OMEGA 3 [FISH OIL] [Concomitant]
     Active Substance: FISH OIL
  6. ALLOPURINOL. [Concomitant]
     Active Substance: ALLOPURINOL
  7. CURCUMA LONGA [Concomitant]
     Active Substance: HERBALS\TURMERIC

REACTIONS (4)
  - Hand fracture [Not Recovered/Not Resolved]
  - Upper limb fracture [Not Recovered/Not Resolved]
  - Myalgia [Not Recovered/Not Resolved]
  - Osteopenia [Not Recovered/Not Resolved]
